FAERS Safety Report 8974279 (Version 1)
Quarter: 2013Q1

REPORT INFORMATION
  Report Type: Spontaneous
  Country: US (occurrence: None)
  Receive Date: 20121217
  Receipt Date: 20121217
  Transmission Date: 20140127
  Serious: Yes (Life-Threatening, Hospitalization)
  Sender: FDA-Public Use
  Company Number: None

PATIENT
  Age: 77 Year
  Sex: Male
  Weight: 69.85 kg

DRUGS (3)
  1. GEMCITABINE [Suspect]
     Indication: BLADDER CANCER
  2. CISPLATIN [Suspect]
     Indication: BLADDER CANCER
  3. NEULASTA [Suspect]
     Indication: BLADDER CANCER

REACTIONS (2)
  - Myocardial infarction [None]
  - Acute coronary syndrome [None]
